FAERS Safety Report 8970481 (Version 1)
Quarter: 2012Q4

REPORT INFORMATION
  Report Type: 
  Country: US (occurrence: US)
  Receive Date: 20121218
  Receipt Date: 20121218
  Transmission Date: 20130627
  Serious: No
  Sender: FDA-Public Use
  Company Number: US-GLAXOSMITHKLINE-A0976914A

PATIENT
  Age: 50 Year
  Sex: Female

DRUGS (1)
  1. WALGREENS [Suspect]
     Indication: EX-TOBACCO USER
     Dates: start: 201204

REACTIONS (1)
  - Stomatitis [Not Recovered/Not Resolved]
